FAERS Safety Report 23782409 (Version 2)
Quarter: 2024Q2

REPORT INFORMATION
  Report Type: Report from Study
  Country: FR (occurrence: FR)
  Receive Date: 20240425
  Receipt Date: 20240607
  Transmission Date: 20240716
  Serious: Yes (Other)
  Sender: FDA-Public Use
  Company Number: FR-TEVA-VS-3187855

PATIENT

DRUGS (3)
  1. METHOTREXATE [Suspect]
     Active Substance: METHOTREXATE
     Indication: Type 2 lepra reaction
     Route: 058
  2. RIFAMPIN [Concomitant]
     Active Substance: RIFAMPIN
     Indication: Type 2 lepra reaction
     Route: 065
  3. CLOFAZIMINE [Concomitant]
     Active Substance: CLOFAZIMINE
     Indication: Type 2 lepra reaction
     Route: 065

REACTIONS (1)
  - COVID-19 [Unknown]
